FAERS Safety Report 6617437-2 (Version None)
Quarter: 2010Q1

REPORT INFORMATION
  Report Type: 
  Country: None (occurrence: None)
  Receive Date: 20100302
  Receipt Date: 20100216
  Transmission Date: 20100710
  Serious: Yes (Hospitalization)
  Sender: FDA-Public Use
  Company Number: 20100069

PATIENT
  Age: 12 Year
  Sex: Female

DRUGS (1)
  1. EPINEPHRINE [Suspect]
     Indication: ANAPHYLACTIC REACTION
     Dosage: 0.3 MG INTRAMUSCULAR
     Route: 030

REACTIONS (8)
  - ANAPHYLACTIC REACTION [None]
  - BRADYCARDIA [None]
  - CONTRAINDICATION TO MEDICAL TREATMENT [None]
  - HYPOTENSION [None]
  - LONG QT SYNDROME [None]
  - NODAL RHYTHM [None]
  - RESPIRATORY DISTRESS [None]
  - TACHYCARDIA [None]
